FAERS Safety Report 12715106 (Version 1)
Quarter: 2016Q3

REPORT INFORMATION
  Report Type: Spontaneous
  Country: SE (occurrence: SE)
  Receive Date: 20160905
  Receipt Date: 20160905
  Transmission Date: 20161109
  Serious: Yes (Death)
  Sender: FDA-Public Use
  Company Number: SE-009507513-1609SWE000668

PATIENT
  Age: 77 Year
  Sex: Male

DRUGS (3)
  1. CANCIDAS [Suspect]
     Active Substance: CASPOFUNGIN ACETATE
     Indication: RESPIRATORY TRACT INFECTION FUNGAL
     Route: 042
     Dates: start: 20160512, end: 20160512
  2. BETMIGA [Suspect]
     Active Substance: MIRABEGRON
     Indication: BLADDER SPASM
     Dosage: 25 MG, QD
     Route: 048
     Dates: start: 20160414, end: 20160512
  3. KALEORID [Concomitant]
     Active Substance: POTASSIUM CHLORIDE

REACTIONS (1)
  - Cardiac arrest [Fatal]

NARRATIVE: CASE EVENT DATE: 20160512
